FAERS Safety Report 12126810 (Version 3)
Quarter: 2016Q2

REPORT INFORMATION
  Report Type: Spontaneous
  Country: US (occurrence: US)
  Receive Date: 20160229
  Receipt Date: 20160505
  Transmission Date: 20160815
  Serious: No
  Sender: FDA-Public Use
  Company Number: US-PFIZER INC-2016082148

PATIENT
  Age: 57 Year
  Sex: Female
  Weight: 79 kg

DRUGS (2)
  1. NICOTROL [Suspect]
     Active Substance: NICOTINE
     Indication: SMOKING CESSATION THERAPY
     Dosage: 6 CARTRIDGES A DAY, CARTRIDGE IS 10MG AND 4MG IS DELIVERED, DAILY
     Dates: start: 2015
  2. NICOTROL [Suspect]
     Active Substance: NICOTINE
     Indication: TOBACCO ABUSE
     Dosage: 1 CARTRIDGE 6-16 TIMES A DAY (10 MG CARTRIDGE) 4 MG DELIVERED DAILY
     Dates: start: 20160119

REACTIONS (2)
  - Arthritis [Unknown]
  - Condition aggravated [Unknown]

NARRATIVE: CASE EVENT DATE: 201511
